FAERS Safety Report 18627927 (Version 5)
Quarter: 2021Q1

REPORT INFORMATION
  Report Type: Spontaneous
  Country: US (occurrence: US)
  Receive Date: 20201217
  Receipt Date: 20210226
  Transmission Date: 20210419
  Serious: Yes (Death, Other)
  Sender: FDA-Public Use
  Company Number: US-TAKEDA-2020TUS058383

PATIENT
  Age: 42 Year
  Sex: Female

DRUGS (2)
  1. ICLUSIG [Suspect]
     Active Substance: PONATINIB
     Dosage: 45 MILLIGRAM, QD
     Route: 048
     Dates: start: 20210118
  2. ICLUSIG [Suspect]
     Active Substance: PONATINIB
     Indication: GASTROINTESTINAL STROMAL TUMOUR
     Dosage: 45 MILLIGRAM, QD
     Route: 048
     Dates: start: 20201215, end: 20210104

REACTIONS (4)
  - Cancer surgery [Unknown]
  - Drug ineffective [Unknown]
  - Gastrointestinal stromal tumour [Fatal]
  - Off label use [Unknown]

NARRATIVE: CASE EVENT DATE: 20201215
